FAERS Safety Report 9290169 (Version 1)
Quarter: 2013Q2

REPORT INFORMATION
  Report Type: Spontaneous
  Country: DE (occurrence: DE)
  Receive Date: 20130515
  Receipt Date: 20130515
  Transmission Date: 20140414
  Serious: Yes (Other)
  Sender: FDA-Public Use
  Company Number: DE-BRISTOL-MYERS SQUIBB COMPANY-18873372

PATIENT
  Age: 49 Year
  Sex: Female

DRUGS (2)
  1. ABILIFY TABS [Suspect]
     Indication: BIPOLAR DISORDER
  2. LITHIUM [Suspect]

REACTIONS (2)
  - Depression [Not Recovered/Not Resolved]
  - Apathy [Not Recovered/Not Resolved]
